FAERS Safety Report 7290962-X (Version None)
Quarter: 2011Q1

REPORT INFORMATION
  Report Type: 
  Country: None (occurrence: None)
  Receive Date: 20110214
  Receipt Date: 20110210
  Transmission Date: 20110831
  Serious: Yes (Other)
  Sender: FDA-Public Use
  Company Number: JP-ABBOTT-11P-087-0704513-00

PATIENT
  Age: 82 Year
  Sex: Female

DRUGS (1)
  1. CEFZON [Suspect]
     Indication: PRODUCT USED FOR UNKNOWN INDICATION
     Route: 048

REACTIONS (3)
  - DIZZINESS [None]
  - MALAISE [None]
  - DEAFNESS [None]
